FAERS Safety Report 8595158-7 (Version None)
Quarter: 2012Q3

REPORT INFORMATION
  Report Type: 
  Country: None (occurrence: None)
  Receive Date: 20120815
  Receipt Date: 20120802
  Transmission Date: 20120928
  Serious: Yes (Other)
  Sender: FDA-Public Use
  Company Number: CN-ASTRAZENECA-2012SE56634

PATIENT
  Sex: Female

DRUGS (1)
  1. ROSUVASTATIN CALCIUM [Suspect]
     Indication: TYPE V HYPERLIPIDAEMIA
     Route: 048
     Dates: start: 20091215, end: 20091217

REACTIONS (2)
  - TETANY [None]
  - CONVULSION [None]
